FAERS Safety Report 20158632 (Version 2)
Quarter: 2022Q1

REPORT INFORMATION
  Report Type: Spontaneous
  Country: SK (occurrence: None)
  Receive Date: 20211207
  Receipt Date: 20220203
  Transmission Date: 20220423
  Serious: Yes (Hospitalization)
  Sender: FDA-Public Use
  Company Number: SK-ROCHE-2972996

PATIENT
  Sex: Female

DRUGS (2)
  1. OCREVUS [Suspect]
     Active Substance: OCRELIZUMAB
     Indication: Multiple sclerosis
     Dosage: SUBSEQUENT DOSE OF OCRELIUZMAB: 09/OCT/2019 (SECOND DOSE).
     Route: 042
     Dates: start: 20190325
  2. COMIRNATY [Concomitant]
     Active Substance: TOZINAMERAN

REACTIONS (1)
  - COVID-19 pneumonia [Recovered/Resolved]

NARRATIVE: CASE EVENT DATE: 20210524
